FAERS Safety Report 9632847 (Version 2)
Quarter: 2013Q4

REPORT INFORMATION
  Report Type: Spontaneous
  Country: US (occurrence: US)
  Receive Date: 20131018
  Receipt Date: 20131018
  Transmission Date: 20140711
  Serious: No
  Sender: FDA-Public Use
  Company Number: US-ASTRAZENECA-2013SE66424

PATIENT
  Age: 76 Year
  Sex: Male
  Weight: 53.5 kg

DRUGS (7)
  1. CRESTOR [Suspect]
     Indication: BLOOD CHOLESTEROL ABNORMAL
     Route: 048
  2. BRILINTA [Suspect]
     Indication: POST PROCEDURAL COMPLICATION
     Route: 048
  3. ASPIRIN [Suspect]
     Route: 065
  4. CLOPIDOGREL [Suspect]
     Route: 065
  5. PANTOPRAZOLE [Concomitant]
     Dosage: NOT SPECIFIED UNK
  6. FORADIL [Concomitant]
     Indication: ASTHMA
     Dosage: NOT SPECIFIED UNK
  7. SLEEPING PILLS [Concomitant]
     Indication: SLEEP DISORDER
     Dosage: NOT SPECIFIED PRN

REACTIONS (3)
  - Dyspnoea [Unknown]
  - Contusion [Recovering/Resolving]
  - Paraesthesia [Not Recovered/Not Resolved]
